FAERS Safety Report 6636732-4 (Version None)
Quarter: 2010Q1

REPORT INFORMATION
  Report Type: 
  Country: None (occurrence: None)
  Receive Date: 20100316
  Receipt Date: 20100308
  Transmission Date: 20100710
  Serious: Yes (Life-Threatening)
  Sender: FDA-Public Use
  Company Number: D0066739A

PATIENT
  Sex: Female

DRUGS (9)
  1. TRACRIUM [Suspect]
     Route: 042
     Dates: start: 20090701, end: 20090701
  2. ULTIVA [Suspect]
     Route: 042
     Dates: start: 20090701, end: 20090701
  3. VOLTAREN [Suspect]
     Route: 048
     Dates: start: 20090613, end: 20090701
  4. DIPYRONE TAB [Suspect]
     Indication: PAIN
     Dosage: 30DROP PER DAY
     Route: 048
     Dates: start: 20090701, end: 20090701
  5. PENICILLIN [Suspect]
     Indication: INFECTION PROPHYLAXIS
     Route: 042
     Dates: start: 20090701, end: 20090701
  6. PENICILLIN VK [Suspect]
     Indication: INFECTION
     Route: 042
     Dates: start: 20090702, end: 20090702
  7. TRAMAL [Suspect]
     Indication: PAIN
     Route: 048
     Dates: start: 20090702, end: 20090703
  8. CEFUROXIME [Suspect]
     Indication: INFECTION
     Dosage: 500MG TWICE PER DAY
     Route: 048
     Dates: start: 20090702, end: 20090703
  9. MULTIPLE MEDICATION [Suspect]
     Route: 065

REACTIONS (11)
  - BLISTER [None]
  - CONJUNCTIVITIS [None]
  - ERYTHEMA [None]
  - INFECTION [None]
  - LIP EROSION [None]
  - NAUSEA [None]
  - PALATAL OEDEMA [None]
  - PRURITUS [None]
  - PYREXIA [None]
  - RESTLESSNESS [None]
  - TOXIC EPIDERMAL NECROLYSIS [None]
